FAERS Safety Report 14471870 (Version 2)
Quarter: 2018Q1

REPORT INFORMATION
  Report Type: Spontaneous
  Country: US (occurrence: US)
  Receive Date: 20180131
  Receipt Date: 20180329
  Transmission Date: 20180509
  Serious: No
  Sender: FDA-Public Use
  Company Number: US-ELI_LILLY_AND_COMPANY-US201801011139

PATIENT
  Age: 10 Year
  Sex: Female

DRUGS (3)
  1. DAYTRANA [Concomitant]
     Active Substance: METHYLPHENIDATE
     Indication: ATTENTION DEFICIT/HYPERACTIVITY DISORDER
     Dosage: UNK, UNKNOWN
     Route: 065
  2. HUMATROPE [Suspect]
     Active Substance: SOMATROPIN
     Indication: FAILURE TO THRIVE
     Dosage: 1.20 MG, UNKNOWN
     Route: 058
     Dates: start: 20170204
  3. HUMATROPE [Suspect]
     Active Substance: SOMATROPIN
     Dosage: 1.2 MG, UNKNOWN
     Route: 058

REACTIONS (3)
  - Contusion [Not Recovered/Not Resolved]
  - Drug dose omission [Unknown]
  - Injection site bruising [Not Recovered/Not Resolved]

NARRATIVE: CASE EVENT DATE: 20180123
